FAERS Safety Report 23016436 (Version 15)
Quarter: 2024Q3

REPORT INFORMATION
  Report Type: Spontaneous
  Country: CN (occurrence: CN)
  Receive Date: 20231002
  Receipt Date: 20240930
  Transmission Date: 20241016
  Serious: Yes (Hospitalization, Other)
  Sender: BAXTER
  Company Number: CN-BAXTER-2023BAX026474

PATIENT
  Age: 49 Year
  Sex: Female
  Weight: 45 kg

DRUGS (20)
  1. CYCLOPHOSPHAMIDE [Suspect]
     Active Substance: CYCLOPHOSPHAMIDE
     Indication: Breast cancer female
     Dosage: 872.7 MG, Q3W, DOSAGE FORM: INJECTION, FIRST CYCLE OF ADJUVANT CHEMOTHERAPY (AC)
     Route: 041
     Dates: start: 20230530, end: 20230530
  2. DOXORUBICIN [Suspect]
     Active Substance: DOXORUBICIN
     Indication: Breast cancer female
     Dosage: 87.3 MG, Q3W, FIRST CYCLE OF ADJUVANT CHEMOTHERAPY (AC)
     Route: 041
     Dates: start: 20230530, end: 20230530
  3. TRASTUZUMAB [Suspect]
     Active Substance: TRASTUZUMAB
     Indication: Breast cancer female
     Dosage: 392 MG(8 MG/KG), Q3W, FIRST CYCLE OF NEOADJUVANT THERAPY (THP CHEMOTHERAPY)
     Route: 041
     Dates: start: 20230214, end: 20230214
  4. TRASTUZUMAB [Suspect]
     Active Substance: TRASTUZUMAB
     Dosage: 294 MG(6 MG/KG), Q3W, SECOND CYCLE OF NEOADJUVANT THERAPY (THP CHEMOTHERAPY)
     Route: 041
     Dates: start: 20230309, end: 20230309
  5. TRASTUZUMAB [Suspect]
     Active Substance: TRASTUZUMAB
     Dosage: 294 MG(6 MG/KG), Q3W, THIRD CYCLE OF NEOADJUVANT THERAPY (THP CHEMOTHERAPY)
     Route: 041
     Dates: start: 20230328, end: 20230328
  6. TRASTUZUMAB [Suspect]
     Active Substance: TRASTUZUMAB
     Dosage: 294 MG(6 MG/KG), Q3W, FOURTH CYCLE OF NEOADJUVANT THERAPY (THP CHEMOTHERAPY)
     Route: 041
     Dates: start: 20230418, end: 20230418
  7. TRASTUZUMAB [Suspect]
     Active Substance: TRASTUZUMAB
     Dosage: 392 MG, Q3W, C9, ADJUVANT THERAPY (HP DUAL TARGET THERAPY)
     Route: 041
     Dates: start: 20230719, end: 20230719
  8. TRASTUZUMAB [Suspect]
     Active Substance: TRASTUZUMAB
     Dosage: 294 MG, Q3W, C10, ADJUVANT THERAPY (HP DUAL TARGET THERAPY)
     Route: 041
     Dates: start: 20230809, end: 20230809
  9. DOCETAXEL [Suspect]
     Active Substance: DOCETAXEL\DOCETAXEL ANHYDROUS
     Indication: Breast cancer female
     Dosage: 109.1 MG(75MG/ME2), Q3W, FIRST CYCLE OF NEOADJUVANT THERAPY (THP CHEMOTHERAPY)
     Route: 041
     Dates: start: 20230214, end: 20230214
  10. DOCETAXEL [Suspect]
     Active Substance: DOCETAXEL\DOCETAXEL ANHYDROUS
     Dosage: 109.1 MG(75MG/ME2), Q3W, SECOND CYCLE OF NEOADJUVANT THERAPY (THP CHEMOTHERAPY)
     Route: 041
     Dates: start: 20230309, end: 20230309
  11. DOCETAXEL [Suspect]
     Active Substance: DOCETAXEL\DOCETAXEL ANHYDROUS
     Dosage: 109.1 MG(75MG/ME2), Q3W, THIRD CYCLE OF NEOADJUVANT THERAPY (THP CHEMOTHERAPY)
     Route: 041
     Dates: start: 20230328, end: 20230328
  12. DOCETAXEL [Suspect]
     Active Substance: DOCETAXEL\DOCETAXEL ANHYDROUS
     Dosage: 109.1 MG(75MG/ME2), Q3W, FOURTH CYCLE OF NEOADJUVANT THERAPY (THP CHEMOTHERAPY)
     Route: 041
     Dates: start: 20230418, end: 20230418
  13. DEXAMETHASONE SODIUM PHOSPHATE [Concomitant]
     Active Substance: DEXAMETHASONE PHOSPHATE\DEXAMETHASONE SODIUM PHOSPHATE
     Indication: Allergy prophylaxis
     Dosage: 10 MG, QD
     Route: 042
     Dates: start: 20230530, end: 20230530
  14. ANF-RHO [Concomitant]
     Active Substance: ANF-RHO
     Indication: Prophylaxis
     Dosage: 3 MG, QD
     Route: 058
     Dates: start: 20230531, end: 20230531
  15. PALONOSETRON HYDROCHLORIDE [Concomitant]
     Active Substance: PALONOSETRON HYDROCHLORIDE
     Indication: Prophylaxis of nausea and vomiting
     Dosage: 0.5 MG, QD
     Route: 048
     Dates: start: 20230530, end: 20230601
  16. APREPITANT [Concomitant]
     Active Substance: APREPITANT
     Indication: Prophylaxis of nausea and vomiting
     Dosage: 125 MG, QD
     Route: 048
     Dates: start: 20230530
  17. APREPITANT [Concomitant]
     Active Substance: APREPITANT
     Dosage: 80 MG, QD
     Route: 048
     Dates: start: 20230531, end: 20230601
  18. FILGRASTIM [Concomitant]
     Active Substance: FILGRASTIM
     Indication: White blood cell count decreased
     Dosage: 300 UG, QD
     Route: 058
     Dates: start: 20230607, end: 20230607
  19. FILGRASTIM [Concomitant]
     Active Substance: FILGRASTIM
     Indication: Neutrophil count decreased
  20. BICYCLOL [Concomitant]
     Active Substance: BICYCLOL
     Indication: Prophylaxis
     Dosage: 50 MG, TID
     Route: 048
     Dates: start: 20230530, end: 20230605

REACTIONS (28)
  - Paraneoplastic neurological syndrome [Not Recovered/Not Resolved]
  - Electrolyte imbalance [Recovering/Resolving]
  - Nausea [Recovered/Resolved]
  - Vomiting [Recovered/Resolved]
  - Dizziness [Recovering/Resolving]
  - Asthenia [Recovering/Resolving]
  - Mobility decreased [Recovering/Resolving]
  - Fatigue [Recovering/Resolving]
  - Vomiting [Recovering/Resolving]
  - Gait inability [Recovering/Resolving]
  - Tongue paralysis [Recovering/Resolving]
  - Dystonia [Recovering/Resolving]
  - Speech disorder [Recovering/Resolving]
  - Muscle tone disorder [Recovering/Resolving]
  - Feeding disorder [Recovering/Resolving]
  - Coordination abnormal [Recovering/Resolving]
  - Tremor [Unknown]
  - Decreased nasolabial fold [Recovering/Resolving]
  - Muscular weakness [Recovered/Resolved]
  - Muscle strength abnormal [Unknown]
  - Muscle spasms [Unknown]
  - Neuropathy peripheral [Recovering/Resolving]
  - Pneumonia [Unknown]
  - Pulmonary mass [Unknown]
  - Hypophagia [Recovering/Resolving]
  - Urinary tract infection [Unknown]
  - Superficial vein thrombosis [Unknown]
  - Venous thrombosis limb [Unknown]

NARRATIVE: CASE EVENT DATE: 20230530
